FAERS Safety Report 12188942 (Version 3)
Quarter: 2016Q2

REPORT INFORMATION
  Report Type: Spontaneous
  Country: US (occurrence: US)
  Receive Date: 20160317
  Receipt Date: 20160426
  Transmission Date: 20160815
  Serious: Yes (Hospitalization, Other)
  Sender: FDA-Public Use
  Company Number: US-PFIZER INC-2016158351

PATIENT
  Age: 78 Year
  Sex: Female
  Weight: 92.52 kg

DRUGS (39)
  1. METOPROLOL TARTRATE. [Suspect]
     Active Substance: METOPROLOL TARTRATE
     Indication: PULMONARY HYPERTENSION
     Dosage: 25 MG, UNK
     Dates: start: 20130403
  2. DIFLUCAN [Concomitant]
     Active Substance: FLUCONAZOLE
     Indication: INFECTION
     Dosage: UNK, 1X/DAY
     Dates: start: 20150614
  3. FISH OIL [Concomitant]
     Active Substance: FISH OIL
     Dosage: 1000 MG, 3X/DAY
     Dates: start: 20100201
  4. GLUCOSAMINE [Concomitant]
     Active Substance: GLUCOSAMINE
     Dosage: 2000 MG, 2X/DAY
  5. LASIX [Concomitant]
     Active Substance: FUROSEMIDE
     Indication: DIURETIC THERAPY
     Dosage: 40 MG, 2X/DAY
     Dates: start: 20130109
  6. ACIDOPHILUS [Concomitant]
     Active Substance: LACTOBACILLUS ACIDOPHILUS
     Dosage: UNK, 1X/DAY
  7. COQ10 [Concomitant]
     Active Substance: UBIDECARENONE
     Dosage: 100 MG, 1X/DAY
  8. METOPROLOL TARTRATE. [Suspect]
     Active Substance: METOPROLOL TARTRATE
     Dosage: 25 MG, UNK
     Dates: start: 20140417
  9. PREDNISONE. [Concomitant]
     Active Substance: PREDNISONE
     Indication: ASTHMA
     Dosage: 20 MG, 3X/DAY
     Dates: start: 20151224, end: 20160101
  10. CELLCEPT [Concomitant]
     Active Substance: MYCOPHENOLATE MOFETIL\MYCOPHENOLATE MOFETIL HYDROCHLORIDE
     Indication: SCLERODERMA
     Dosage: 500 MG, 3X/DAY
     Dates: start: 20090108
  11. KEFLEX [Concomitant]
     Active Substance: CEPHALEXIN
     Indication: ANTIBIOTIC THERAPY
     Dosage: 500 MG, AS NEEDED
  12. MAXAPEX [Concomitant]
     Indication: RESTLESS LEGS SYNDROME
     Dosage: 1.5 MG, 3X/DAY (SPLIT PILL 3)
     Dates: start: 20071008
  13. OPSUMIT [Concomitant]
     Active Substance: MACITENTAN
     Indication: BLOOD PRESSURE ABNORMAL
  14. SYNTHROID [Concomitant]
     Active Substance: LEVOTHYROXINE SODIUM
     Indication: THYROID DISORDER
     Dosage: 0.75 MG, 1X/DAY
     Dates: start: 20030402
  15. FOLIC ACID. [Concomitant]
     Active Substance: FOLIC ACID
     Dosage: 400 MG, 3X/DAY
  16. VITAMIN D [Concomitant]
     Active Substance: CHOLECALCIFEROL
     Dosage: 1000 MG, 2X/DAY
     Dates: start: 20120514
  17. ELIQUIS [Concomitant]
     Active Substance: APIXABAN
     Indication: ANTICOAGULANT THERAPY
     Dosage: 5 MG, 1X/DAY
     Dates: start: 20150114
  18. THALITONE [Concomitant]
     Active Substance: CHLORTHALIDONE
     Indication: DIURETIC THERAPY
     Dosage: 25 MG, UNK (1/2 A DAY)
     Dates: start: 20130201
  19. LIDODERM [Concomitant]
     Active Substance: LIDOCAINE
     Indication: PAIN
     Dosage: 5 %, AS NEEDED
     Dates: start: 20090218
  20. TYLENOL [Concomitant]
     Active Substance: ACETAMINOPHEN
     Dosage: UNK, AS NEEDED (3 A DAY)
  21. FLAXSEED [Concomitant]
     Active Substance: FLAX SEED
     Dosage: 1000 UG, 1X/DAY
  22. METOPROLOL TARTRATE. [Suspect]
     Active Substance: METOPROLOL TARTRATE
     Indication: BLOOD PRESSURE ABNORMAL
     Dosage: 25 MG, UNK
     Dates: start: 20071130
  23. ZINC [Concomitant]
     Active Substance: ZINC\ZINC CHLORIDE
     Dosage: 50 MG, 1X/DAY
  24. ONE SOURCE [Concomitant]
     Dosage: 1000 MG, 1X/DAY
  25. REVATIO [Suspect]
     Active Substance: SILDENAFIL CITRATE
     Indication: PULMONARY ARTERIAL HYPERTENSION
     Dosage: 20 MG, 3X/DAY
     Route: 048
     Dates: start: 20090428
  26. PROAIR HFA [Concomitant]
     Active Substance: ALBUTEROL SULFATE
     Indication: DYSPNOEA
     Dosage: 90 %, AS NEEDED
     Dates: start: 20090323
  27. LISINOPRIL. [Concomitant]
     Active Substance: LISINOPRIL
     Indication: BLOOD PRESSURE ABNORMAL
     Dosage: 5 MG, 1X/DAY
     Dates: start: 20110209
  28. THALITONE [Concomitant]
     Active Substance: CHLORTHALIDONE
     Indication: BLOOD PRESSURE ABNORMAL
  29. SELENIUM [Concomitant]
     Active Substance: SELENIUM
     Dosage: 200 UG, 1X/DAY
  30. DIFLUCAN [Concomitant]
     Active Substance: FLUCONAZOLE
     Dosage: UNK, 1X/DAY
     Dates: start: 20150903
  31. K TAB [Concomitant]
     Indication: HYPOKALAEMIA
     Dosage: 10 MG, 1X/DAY
  32. OPSUMIT [Concomitant]
     Active Substance: MACITENTAN
     Indication: SCLERODERMA
     Dosage: 10 MG, 1X/DAY
     Dates: start: 20131214
  33. ULTRAM [Concomitant]
     Active Substance: TRAMADOL HYDROCHLORIDE
     Indication: PAIN
     Dosage: 50 MG, 4X/DAY
  34. DICLOFENAC [Concomitant]
     Active Substance: DICLOFENAC
     Indication: ECZEMA
     Dosage: 5 %, AS NEEDED
     Dates: start: 20110630
  35. TOPICORT [Concomitant]
     Active Substance: DESOXIMETASONE
     Indication: ECZEMA
     Dosage: 5 %, AS NEEDED
     Dates: start: 20110630
  36. REVATIO [Suspect]
     Active Substance: SILDENAFIL CITRATE
     Indication: LUNG DISORDER
     Dosage: 3 DF, DAILY (3 A DAY)
     Dates: start: 20090428
  37. METOPROLOL TARTRATE. [Suspect]
     Active Substance: METOPROLOL TARTRATE
     Dosage: 20 MG, UNK
     Dates: start: 20140417, end: 20160228
  38. CARNITOR [Concomitant]
     Active Substance: LEVOCARNITINE
     Indication: RENAL DISORDER
     Dosage: 330 MG, 3X/DAY
     Dates: start: 20080221
  39. PRAVACHOL [Concomitant]
     Active Substance: PRAVASTATIN SODIUM
     Dosage: 80 MG, 1X/DAY
     Dates: start: 20160214

REACTIONS (7)
  - Cardiac arrest [Recovered/Resolved]
  - Vein disorder [Recovered/Resolved]
  - Drug dose omission [Recovered/Resolved]
  - Dyspnoea [Recovered/Resolved]
  - Loss of consciousness [Recovered/Resolved]
  - Drug clearance decreased [Recovered/Resolved]
  - Dizziness [Recovered/Resolved]

NARRATIVE: CASE EVENT DATE: 2009
